FAERS Safety Report 5843570-9 (Version None)
Quarter: 2008Q3

REPORT INFORMATION
  Report Type: 
  Country: None (occurrence: None)
  Receive Date: 20080813
  Receipt Date: 20080429
  Transmission Date: 20090109
  Serious: No
  Sender: FDA-Public Use
  Company Number: A0725354A

PATIENT
  Age: 63 Year
  Sex: Female

DRUGS (7)
  1. COREG CR [Suspect]
     Dosage: 20MG PER DAY
     Route: 048
     Dates: start: 20080428
  2. POTASSIUM CHLORIDE [Concomitant]
  3. PHENOBARBITAL TAB [Concomitant]
  4. MAXZIDE [Concomitant]
  5. NEXIUM [Concomitant]
  6. DITROPAN [Concomitant]
  7. FLEXERIL [Concomitant]

REACTIONS (5)
  - CHEST PAIN [None]
  - DIARRHOEA [None]
  - DIZZINESS [None]
  - PAIN IN EXTREMITY [None]
  - WEIGHT INCREASED [None]
